FAERS Safety Report 18267336 (Version 1)
Quarter: 2020Q3

REPORT INFORMATION
  Report Type: Spontaneous
  Country: US (occurrence: US)
  Receive Date: 20200915
  Receipt Date: 20200915
  Transmission Date: 20201103
  Serious: No
  Sender: FDA-Public Use
  Company Number: None

PATIENT
  Age: 67 Year
  Sex: Female

DRUGS (1)
  1. LEVOTHYROXINE. [Suspect]
     Active Substance: LEVOTHYROXINE
     Dosage: ?          OTHER FREQUENCY:EVERY MORNING;?
     Route: 048
     Dates: start: 20200714, end: 20200914

REACTIONS (4)
  - Product tampering [None]
  - Victim of crime [None]
  - Emotional disorder [None]
  - Toxicity to various agents [None]

NARRATIVE: CASE EVENT DATE: 20200914
